FAERS Safety Report 24611954 (Version 1)
Quarter: 2024Q4

REPORT INFORMATION
  Report Type: Report from Study
  Country: US (occurrence: US)
  Receive Date: 20241113
  Receipt Date: 20241113
  Transmission Date: 20250115
  Serious: Yes (Other)
  Sender: TAKEDA
  Company Number: US-TAKEDA-2024TUS111971

PATIENT
  Sex: Male

DRUGS (2)
  1. IXAZOMIB [Suspect]
     Active Substance: IXAZOMIB
     Indication: Plasma cell myeloma
     Dosage: 3 MILLIGRAM, Q3WEEKS
     Dates: start: 202306
  2. IXAZOMIB [Suspect]
     Active Substance: IXAZOMIB
     Dosage: 3 MILLIGRAM

REACTIONS (11)
  - Atrial fibrillation [Unknown]
  - Haematochezia [Unknown]
  - Pneumonia viral [Unknown]
  - Chest pain [Unknown]
  - Vision blurred [Unknown]
  - Dry eye [Unknown]
  - Radiation proctitis [Unknown]
  - Dysuria [Unknown]
  - Anaemia [Unknown]
  - Carpal tunnel syndrome [Unknown]
  - Constipation [Unknown]

NARRATIVE: CASE EVENT DATE: 20230101
